FAERS Safety Report 6282319-5 (Version None)
Quarter: 2009Q3

REPORT INFORMATION
  Report Type: 
  Country: None (occurrence: None)
  Receive Date: 20090722
  Receipt Date: 20090722
  Transmission Date: 20100115
  Serious: Yes (Other)
  Sender: FDA-Public Use
  Company Number: None

PATIENT
  Age: 57 Year
  Sex: Female
  Weight: 97.0698 kg

DRUGS (2)
  1. DIOVAN HCT [Suspect]
     Indication: HYPERTENSION
     Dosage: 80 MG ONCE A DAY PO
     Route: 048
     Dates: start: 20061001, end: 20090630
  2. DIOVAN HCT [Suspect]
     Indication: PROPHYLAXIS
     Dosage: 80 MG ONCE A DAY PO
     Route: 048
     Dates: start: 20061001, end: 20090630

REACTIONS (6)
  - COUGH [None]
  - DYSPNOEA [None]
  - FATIGUE [None]
  - PRURITUS [None]
  - RETCHING [None]
  - SINUSITIS [None]
